FAERS Safety Report 24700122 (Version 1)
Quarter: 2024Q4

REPORT INFORMATION
  Report Type: Spontaneous
  Country: FR (occurrence: FR)
  Receive Date: 20241205
  Receipt Date: 20241205
  Transmission Date: 20250115
  Serious: Yes (Hospitalization)
  Sender: RANBAXY
  Company Number: FR-AFSSAPS-RE2024001051

PATIENT
  Age: 91 Year
  Sex: Male
  Weight: 62 kg

DRUGS (9)
  1. ACETAMINOPHEN [Suspect]
     Active Substance: ACETAMINOPHEN
     Indication: Pain
     Dosage: 500 MILLIGRAM, ASNECESSARY
     Route: 048
  2. SERTRALINE [Suspect]
     Active Substance: SERTRALINE HYDROCHLORIDE
     Indication: Mental disorder
     Dosage: 25 MILLIGRAM, DAILY
     Route: 048
  3. TAMSULOSIN [Suspect]
     Active Substance: TAMSULOSIN
     Indication: Prostate cancer
     Dosage: 4 MILLIGRAM, DAILY
     Route: 048
  4. NEO-MERCAZOLE [Suspect]
     Active Substance: CARBIMAZOLE
     Indication: Hyperthyroidism
     Dosage: UNK
     Route: 048
     Dates: start: 20241002, end: 20241003
  5. ELIQUIS [Suspect]
     Active Substance: APIXABAN
     Indication: Atrial fibrillation
     Dosage: 5 MILLIGRAM, DAILY
     Route: 048
  6. PROPRANOLOL [Suspect]
     Active Substance: PROPRANOLOL HYDROCHLORIDE
     Indication: Cardiomyopathy
     Dosage: 40 MILLIGRAM, DAILY
     Route: 048
  7. JARDIANCE [Suspect]
     Active Substance: EMPAGLIFLOZIN
     Indication: Cardiomyopathy
     Dosage: 10 MILLIGRAM, DAILY
     Route: 048
  8. OXAZEPAM [Suspect]
     Active Substance: OXAZEPAM
     Indication: Mental disorder
     Dosage: 30 MILLIGRAM, DAILY
     Route: 048
  9. RISPERDAL [Suspect]
     Active Substance: RISPERIDONE
     Indication: Mental disorder
     Dosage: 1.5 MILLIGRAM, DAILY
     Route: 048

REACTIONS (1)
  - Psychotic disorder [Not Recovered/Not Resolved]

NARRATIVE: CASE EVENT DATE: 20241003
